FAERS Safety Report 6180070-3 (Version None)
Quarter: 2009Q2

REPORT INFORMATION
  Report Type: 
  Country: None (occurrence: None)
  Receive Date: 20090501
  Receipt Date: 20090416
  Transmission Date: 20091009
  Serious: Yes (Other)
  Sender: FDA-Public Use
  Company Number: 2009S1006773

PATIENT
  Age: 24 Year
  Sex: Female

DRUGS (1)
  1. PHENYTON SODIUM 1GR CAP [Suspect]
     Indication: CONVULSION
     Dosage: 100 MG; 3 TIMES A DAY; ORAL
     Route: 048

REACTIONS (3)
  - ANTICONVULSANT DRUG LEVEL DECREASED [None]
  - GRAND MAL CONVULSION [None]
  - PRODUCT QUALITY ISSUE [None]
